FAERS Safety Report 6612467-9 (Version None)
Quarter: 2010Q1

REPORT INFORMATION
  Report Type: 
  Country: None (occurrence: None)
  Receive Date: 20100303
  Receipt Date: 20100225
  Transmission Date: 20100710
  Serious: Yes (Hospitalization)
  Sender: FDA-Public Use
  Company Number: NG-PFIZER INC-2010024806

PATIENT
  Sex: Male

DRUGS (2)
  1. LIPITOR [Suspect]
     Dosage: 10 MG, DAILY
  2. ACETYLSALICYLIC ACID [Suspect]
     Dosage: 75 MG, DAILY

REACTIONS (1)
  - PANCREATITIS ACUTE [None]
